FAERS Safety Report 24705542 (Version 1)
Quarter: 2024Q4

REPORT INFORMATION
  Report Type: Spontaneous
  Country: AT (occurrence: AT)
  Receive Date: 20241206
  Receipt Date: 20241206
  Transmission Date: 20250115
  Serious: Yes (Other)
  Sender: HIKMA
  Company Number: AT-HIKMA PHARMACEUTICALS-AT-H14001-24-11088

PATIENT
  Age: 70 Year
  Sex: Male
  Weight: 111 kg

DRUGS (1)
  1. CIPROFLOXACIN [Suspect]
     Active Substance: CIPROFLOXACIN
     Indication: Product used for unknown indication
     Dosage: UNK
     Route: 042
     Dates: start: 20241113, end: 20241113

REACTIONS (3)
  - Circulatory collapse [Recovered/Resolved]
  - Blood pressure decreased [Recovered/Resolved]
  - Rash [Recovered/Resolved]

NARRATIVE: CASE EVENT DATE: 20241113
